FAERS Safety Report 17490466 (Version 1)
Quarter: 2020Q1

REPORT INFORMATION
  Report Type: Spontaneous
  Country: US (occurrence: US)
  Receive Date: 20200303
  Receipt Date: 20200303
  Transmission Date: 20200409
  Serious: No
  Sender: FDA-Public Use
  Company Number: US-AKORN PHARMACEUTICALS-2019AKN00543

PATIENT
  Sex: Male
  Weight: 73.02 kg

DRUGS (5)
  1. MYORISAN [Suspect]
     Active Substance: ISOTRETINOIN
     Indication: ACNE
     Dosage: 40 MG, 1X/DAY
     Dates: start: 20181026
  2. CLINDAMYCIN. [Concomitant]
     Active Substance: CLINDAMYCIN
     Dosage: UNK, 2X/DAY
  3. MYORISAN [Suspect]
     Active Substance: ISOTRETINOIN
     Indication: ACNE
     Dosage: CUMULATIVE DOSE 70 MG, 1X/DAY
     Dates: end: 20190315
  4. MYORISAN [Suspect]
     Active Substance: ISOTRETINOIN
     Dosage: 80 MG, 1X/DAY
     Dates: end: 20190315
  5. MYORISAN [Suspect]
     Active Substance: ISOTRETINOIN
     Dosage: CUMULATIVE DOSE 70 MG, 1X/DAY

REACTIONS (3)
  - Cyst [Recovering/Resolving]
  - Malabsorption [Recovered/Resolved]
  - Therapeutic product effect incomplete [Recovered/Resolved]
